FAERS Safety Report 10170380 (Version 3)
Quarter: 2014Q2

REPORT INFORMATION
  Report Type: Spontaneous
  Country: JP (occurrence: JP)
  Receive Date: 20140513
  Receipt Date: 20140602
  Transmission Date: 20141212
  Serious: Yes (Death, Other)
  Sender: FDA-Public Use
  Company Number: JP-PFIZER INC-2014093666

PATIENT
  Age: 79 Year
  Sex: Female

DRUGS (4)
  1. ZITHROMAC [Suspect]
     Indication: ATYPICAL PNEUMONIA
     Dosage: 500 MG, 1X/DAY
     Route: 041
     Dates: start: 20140331, end: 20140402
  2. ZOSYN [Suspect]
     Indication: PNEUMONIA
     Dosage: 4.5 G, 2X/DAY
     Route: 041
     Dates: start: 20140328, end: 20140402
  3. TAKEPRON [Concomitant]
     Dosage: UNK
  4. VITAMEDIN INTRAVENOUS [Concomitant]
     Dosage: 1 DF, UNK
     Route: 041
     Dates: start: 20140329, end: 20140409

REACTIONS (2)
  - Interstitial lung disease [Fatal]
  - Liver disorder [Recovered/Resolved]
